FAERS Safety Report 6012266-5 (Version None)
Quarter: 2008Q4

REPORT INFORMATION
  Report Type: 
  Country: None (occurrence: None)
  Receive Date: 20081218
  Receipt Date: 20081211
  Transmission Date: 20090506
  Serious: Yes (Hospitalization)
  Sender: FDA-Public Use
  Company Number: US-KINGPHARMUSA00001-K200801402

PATIENT
  Sex: Female

DRUGS (2)
  1. TILADE [Suspect]
     Indication: ACUTE SINUSITIS
     Dosage: UNK
     Route: 045
     Dates: start: 20080114, end: 20080115
  2. SANDOMIGRAN [Suspect]
     Indication: ACUTE SINUSITIS
     Dosage: UNK
     Route: 048
     Dates: start: 20080114, end: 20080115

REACTIONS (3)
  - PRURITUS [None]
  - RASH ERYTHEMATOUS [None]
  - URTICARIA [None]
